FAERS Safety Report 5621364-7 (Version None)
Quarter: 2008Q1

REPORT INFORMATION
  Report Type: 
  Country: None (occurrence: None)
  Receive Date: 20080129
  Receipt Date: 20080114
  Transmission Date: 20080703
  Serious: Yes (Death)
  Sender: FDA-Public Use
  Company Number: B0503099A

PATIENT
  Age: 46 Year
  Sex: Male

DRUGS (6)
  1. BUPROPION HYDROCHLORIDE [Suspect]
     Dosage: ORAL
     Route: 048
  2. OXYCODONE HCL [Suspect]
     Dosage: ORAL
     Route: 048
  3. ANTIHISTAMINE [Suspect]
     Dosage: ORAL
     Route: 048
  4. DECONGESTANT [Suspect]
     Dosage: ORAL
     Route: 048
  5. SERTRALINE [Suspect]
     Dosage: ORAL
     Route: 048
  6. IBUPROFEN [Suspect]
     Dosage: ORAL
     Route: 048

REACTIONS (1)
  - INTENTIONAL DRUG MISUSE [None]
